FAERS Safety Report 9564233 (Version 2)
Quarter: 2013Q3

REPORT INFORMATION
  Report Type: Spontaneous
  Country: US (occurrence: US)
  Receive Date: 20130930
  Receipt Date: 20130930
  Transmission Date: 20140515
  Serious: Yes (Hospitalization)
  Sender: FDA-Public Use
  Company Number: US-BIOGENIDEC-2013BI077285

PATIENT
  Age: 61 Year
  Sex: Female

DRUGS (1)
  1. AVONEX [Suspect]
     Indication: MULTIPLE SCLEROSIS
     Route: 030
     Dates: start: 200408

REACTIONS (5)
  - General physical health deterioration [Unknown]
  - Infection susceptibility increased [Unknown]
  - Mobility decreased [Unknown]
  - Asthenia [Unknown]
  - Cystitis [Recovered/Resolved]
